FAERS Safety Report 19423561 (Version 3)
Quarter: 2021Q3

REPORT INFORMATION
  Report Type: Spontaneous
  Country: JP (occurrence: JP)
  Receive Date: 20210616
  Receipt Date: 20210723
  Transmission Date: 20211014
  Serious: Yes (Hospitalization)
  Sender: FDA-Public Use
  Company Number: JP-MYOVANT SCIENCES GMBH-2021MYSCI0600165

PATIENT
  Age: 30 Year
  Sex: Female

DRUGS (4)
  1. RELUMINA [Suspect]
     Active Substance: RELUGOLIX
     Indication: HEAVY MENSTRUAL BLEEDING
  2. TRANSAMIN [Concomitant]
     Active Substance: TRANEXAMIC ACID
     Indication: HEAVY MENSTRUAL BLEEDING
     Dosage: 1500 MILLIGRAM, QD
     Route: 048
     Dates: start: 20210505, end: 20210511
  3. RELUMINA [Suspect]
     Active Substance: RELUGOLIX
     Indication: UTERINE LEIOMYOMA
     Dosage: 40 MILLIGRAM
     Route: 048
     Dates: start: 20210505, end: 20210531
  4. INCREMIN                           /00023544/ [Concomitant]
     Active Substance: FERRIC PYROPHOSPHATE
     Indication: IRON DEFICIENCY ANAEMIA
     Dosage: 90 MILLIGRAM, QD
     Route: 048
     Dates: start: 20210424

REACTIONS (1)
  - Uterine haemorrhage [Recovered/Resolved]

NARRATIVE: CASE EVENT DATE: 20210531
